FAERS Safety Report 9781051 (Version 2)
Quarter: 2013Q4

REPORT INFORMATION
  Report Type: Spontaneous
  Country: SE (occurrence: SE)
  Receive Date: 20131224
  Receipt Date: 20131231
  Transmission Date: 20140711
  Serious: Yes (Other)
  Sender: FDA-Public Use
  Company Number: SE-ASTELLAS-2013EU011224

PATIENT
  Sex: Female

DRUGS (2)
  1. BETMIGA [Suspect]
     Indication: HYPERTONIC BLADDER
     Dosage: 50 MG, UID/QD
     Route: 048
     Dates: start: 20130612
  2. VAGIFEM [Concomitant]
     Dosage: UNK
     Route: 065

REACTIONS (1)
  - Pyelonephritis [Recovered/Resolved]
